FAERS Safety Report 23078881 (Version 1)
Quarter: 2023Q4

REPORT INFORMATION
  Report Type: Spontaneous
  Country: US (occurrence: US)
  Receive Date: 20231018
  Receipt Date: 20231018
  Transmission Date: 20240110
  Serious: Yes (Other)
  Sender: FDA-Public Use
  Company Number: US-UCBSA-2023030003

PATIENT
  Sex: Female
  Weight: 80.726 kg

DRUGS (1)
  1. CIMZIA [Suspect]
     Active Substance: CERTOLIZUMAB PEGOL
     Indication: Psoriatic arthropathy
     Dosage: 400 MILLIGRAM, EV 4 WEEKS
     Route: 058
     Dates: start: 202302

REACTIONS (7)
  - Surgery [Unknown]
  - Salivary gland operation [Recovering/Resolving]
  - Tooth fracture [Unknown]
  - Neck pain [Unknown]
  - Headache [Unknown]
  - Product dose omission in error [Unknown]
  - Product availability issue [Unknown]

NARRATIVE: CASE EVENT DATE: 20230101
